FAERS Safety Report 25680531 (Version 4)
Quarter: 2025Q4

REPORT INFORMATION
  Report Type: Spontaneous
  Country: CA (occurrence: CA)
  Receive Date: 20250814
  Receipt Date: 20251208
  Transmission Date: 20260118
  Serious: Yes (Hospitalization, Other)
  Sender: PFIZER
  Company Number: CA-PFIZER INC-202500119481

PATIENT
  Age: 27 Year
  Sex: Female
  Weight: 67 kg

DRUGS (6)
  1. IXIFI [Suspect]
     Active Substance: INFLIXIMAB-QBTX
     Indication: Crohn^s disease
     Dosage: 10 MG/KG WEEK 0 (RECEIVED IN HOSPITAL)
     Route: 042
     Dates: start: 20250509, end: 20250509
  2. IXIFI [Suspect]
     Active Substance: INFLIXIMAB-QBTX
     Dosage: 5 MG/KG WEEK 2,6 THEN Q 8 WKS
     Route: 042
     Dates: start: 20250521
  3. IXIFI [Suspect]
     Active Substance: INFLIXIMAB-QBTX
     Dosage: 335 MG, W6 INDUCTION
     Route: 042
     Dates: start: 20250618
  4. IXIFI [Suspect]
     Active Substance: INFLIXIMAB-QBTX
     Dosage: 325 MG, 8 WEEKS, (5MG/KG, EVERY 8 WEEKS,WEEK 2,6 THEN Q 8 WKS)
     Route: 042
     Dates: start: 20250812
  5. IXIFI [Suspect]
     Active Substance: INFLIXIMAB-QBTX
     Dosage: 332.5 MG, EVERY 8 WEEKS, (5 MG/KG, EVERY 8 WEEKS, WEEK 2,6 THEN Q 8 WKS)
     Route: 042
     Dates: start: 20251009
  6. IXIFI [Suspect]
     Active Substance: INFLIXIMAB-QBTX
     Dosage: 330 MG, EVERY 8 WEEKS
     Route: 042
     Dates: start: 20251201

REACTIONS (10)
  - Clostridium difficile infection [Recovered/Resolved]
  - Migraine [Unknown]
  - Nausea [Unknown]
  - Vomiting [Not Recovered/Not Resolved]
  - Dyspepsia [Unknown]
  - Reflux gastritis [Not Recovered/Not Resolved]
  - Eating disorder [Not Recovered/Not Resolved]
  - Condition aggravated [Recovering/Resolving]
  - Headache [Recovering/Resolving]
  - Blood pressure increased [Unknown]

NARRATIVE: CASE EVENT DATE: 20250101
